FAERS Safety Report 5730262-X (Version None)
Quarter: 2008Q2

REPORT INFORMATION
  Report Type: 
  Country: None (occurrence: None)
  Receive Date: 20080505
  Receipt Date: 20080505
  Transmission Date: 20081010
  Serious: Yes (Hospitalization)
  Sender: FDA-Public Use
  Company Number: None

PATIENT
  Age: 58 Year
  Sex: Female
  Weight: 61.2356 kg

DRUGS (1)
  1. ALBUTEROL [Suspect]
     Indication: BRONCHOSPASM
     Dosage: INHALE 2 PUFFS 4 TIMES A DAY PO; 2 REFILLS
     Route: 048
     Dates: start: 20080416, end: 20080423

REACTIONS (4)
  - ARRHYTHMIA [None]
  - DRUG EFFECT DECREASED [None]
  - DYSPNOEA [None]
  - PHARMACEUTICAL PRODUCT COMPLAINT [None]
